FAERS Safety Report 10993678 (Version 1)
Quarter: 2015Q2

REPORT INFORMATION
  Report Type: Spontaneous
  Country: US (occurrence: US)
  Receive Date: 20150407
  Receipt Date: 20150407
  Transmission Date: 20150821
  Serious: No
  Sender: FDA-Public Use
  Company Number: US-BIOGENIDEC-2015BI029650

PATIENT
  Sex: Female

DRUGS (1)
  1. TYSABRI [Suspect]
     Active Substance: NATALIZUMAB
     Indication: MULTIPLE SCLEROSIS
     Route: 042
     Dates: start: 20150218

REACTIONS (6)
  - Malaise [Recovered/Resolved]
  - Sinus headache [Unknown]
  - Back pain [Recovered/Resolved]
  - Urticaria [Recovered/Resolved]
  - Cognitive disorder [Unknown]
  - Sinus disorder [Not Recovered/Not Resolved]
